FAERS Safety Report 9149335 (Version 2)
Quarter: 2013Q2

REPORT INFORMATION
  Report Type: Spontaneous
  Country: US (occurrence: US)
  Receive Date: 20130308
  Receipt Date: 20130412
  Transmission Date: 20140414
  Serious: Yes (Hospitalization)
  Sender: FDA-Public Use
  Company Number: US-B.I. PHARMACEUTICALS,INC./RIDGEFIELD-2013-BI-05335BP

PATIENT
  Age: 82 Year
  Sex: Female

DRUGS (16)
  1. PRADAXA [Suspect]
     Indication: ATRIAL FIBRILLATION
     Dosage: 300 MG
     Route: 048
     Dates: start: 20121203
  2. OSCAL [Concomitant]
     Dosage: 500 MG
     Route: 048
  3. XALANTAN EYE DROPS [Concomitant]
  4. ENALAPRIL [Concomitant]
     Dosage: 10 MG
     Route: 048
  5. ANTIHYPERTENSIVES [Concomitant]
     Route: 048
  6. ALPHAGEN EYE DROPS [Concomitant]
  7. VITAMIN D3 [Concomitant]
     Dosage: 1000 MG
     Route: 048
  8. METOPROLOL [Concomitant]
     Dosage: 50 MG
     Route: 048
  9. LANOXIN [Concomitant]
     Route: 048
  10. OMEGA 3 [Concomitant]
     Route: 048
  11. ASPIRIN [Concomitant]
     Dosage: 81 MG
     Route: 048
  12. LASIX [Concomitant]
     Dosage: 0.125 MG
     Route: 048
  13. ULTRAM [Concomitant]
     Indication: PAIN
     Route: 048
  14. LEVOTHYROXINE [Concomitant]
     Dosage: 50 MCG
     Route: 048
  15. TIMOPTIC EYE DROPS [Concomitant]
  16. AMBIEN [Concomitant]
     Indication: SLEEP DISORDER
     Route: 048

REACTIONS (9)
  - Pneumonia [Recovered/Resolved]
  - Dyspnoea [Recovered/Resolved]
  - Fatigue [Recovered/Resolved]
  - Palpitations [Recovered/Resolved]
  - Atrial fibrillation [Recovered/Resolved]
  - Pyrexia [Recovered/Resolved]
  - Gait disturbance [Recovered/Resolved]
  - Dizziness [Recovered/Resolved]
  - Hypotension [Recovered/Resolved]
